FAERS Safety Report 5061282-9 (Version None)
Quarter: 2006Q3

REPORT INFORMATION
  Report Type: 
  Country: None (occurrence: None)
  Receive Date: 20060721
  Receipt Date: 20060721
  Transmission Date: 20061208
  Serious: Yes (Other)
  Sender: FDA-Public Use
  Company Number: None

PATIENT
  Sex: Male
  Weight: 72.5755 kg

DRUGS (1)
  1. FLUTICASONE PROPIONATE [Suspect]
     Dosage: SPRAY TWICE DAILY (120 NNH) 16GM
     Route: 045
     Dates: start: 20060517, end: 20060601

REACTIONS (4)
  - EYE IRRITATION [None]
  - INSOMNIA [None]
  - NASAL DISCOMFORT [None]
  - PHARYNGOLARYNGEAL PAIN [None]
